FAERS Safety Report 8772083 (Version 1)
Quarter: 2012Q4

REPORT INFORMATION
  Report Type: 
  Country: GB (occurrence: GB)
  Receive Date: 20120906
  Receipt Date: 20120906
  Transmission Date: 20130627
  Serious: Yes (Other)
  Sender: FDA-Public Use
  Company Number: GB-JNJFOC-20120902267

PATIENT
  Sex: Female

DRUGS (2)
  1. XARELTO [Suspect]
     Indication: THROMBOSIS PROPHYLAXIS
     Route: 065
     Dates: start: 2012
  2. XARELTO [Suspect]
     Indication: HIP ARTHROPLASTY
     Route: 065
     Dates: start: 2012

REACTIONS (1)
  - Deep vein thrombosis [Unknown]
